FAERS Safety Report 13734628 (Version 1)
Quarter: 2017Q3

REPORT INFORMATION
  Report Type: Spontaneous
  Country: US (occurrence: US)
  Receive Date: 20170709
  Receipt Date: 20170709
  Transmission Date: 20171127
  Serious: No
  Sender: FDA-Public Use
  Company Number: US-009507513-1706USA007782

PATIENT
  Sex: Female

DRUGS (3)
  1. BELSOMRA [Suspect]
     Active Substance: SUVOREXANT
     Indication: INSOMNIA
     Dosage: 10 MG TABLET, 1 TABLET IN THE EARLY EVENING EVERYDAY
     Route: 048
     Dates: start: 201704, end: 2017
  2. BELSOMRA [Suspect]
     Active Substance: SUVOREXANT
     Indication: INSOMNIA
     Dosage: 15 MG TABLET, 1 TABLET IN THE EARLY EVENING EVERYDAY
     Route: 048
     Dates: start: 2017, end: 2017
  3. BELSOMRA [Suspect]
     Active Substance: SUVOREXANT
     Indication: INSOMNIA
     Dosage: 20 MG TABLET, 1 TABLET IN THE EARLY EVENING EVERYDAY
     Route: 048
     Dates: start: 2017, end: 2017

REACTIONS (2)
  - Abnormal dreams [Unknown]
  - Drug ineffective [Unknown]

NARRATIVE: CASE EVENT DATE: 2017
